FAERS Safety Report 20816957 (Version 1)
Quarter: 2022Q2

REPORT INFORMATION
  Report Type: Spontaneous
  Country: US (occurrence: US)
  Receive Date: 20220512
  Receipt Date: 20220512
  Transmission Date: 20220721
  Serious: No
  Sender: FDA-Public Use
  Company Number: US-DSJP-DSU-2022-116331AA

PATIENT
  Sex: Female

DRUGS (1)
  1. CEVIMELINE HYDROCHLORIDE [Suspect]
     Active Substance: CEVIMELINE HYDROCHLORIDE
     Indication: Sjogren^s syndrome
     Dosage: UNK
     Route: 065

REACTIONS (1)
  - Drug ineffective [Unknown]
